FAERS Safety Report 23554976 (Version 2)
Quarter: 2024Q1

REPORT INFORMATION
  Report Type: Report from Study
  Country: GB (occurrence: GB)
  Receive Date: 20240222
  Receipt Date: 20240227
  Transmission Date: 20240410
  Serious: Yes (Life-Threatening, Hospitalization, Other)
  Sender: FDA-Public Use
  Company Number: GB-PHARMAMAR-2023PM000853

PATIENT
  Sex: Female
  Weight: 72.7 kg

DRUGS (11)
  1. LURBINECTEDIN [Suspect]
     Active Substance: LURBINECTEDIN
     Indication: Small cell lung cancer
     Dosage: 2 MILLIGRAM/SQ. METER, D1Q3W
     Route: 042
     Dates: start: 20230817, end: 20231025
  2. LURBINECTEDIN [Suspect]
     Active Substance: LURBINECTEDIN
     Dosage: 2 MILLIGRAM/SQ. METER, CYCLE 5
     Route: 042
     Dates: start: 20231122
  3. IRINOTECAN [Suspect]
     Active Substance: IRINOTECAN
     Indication: Small cell lung cancer
     Dosage: 75 MILLIGRAM/SQ. METER, D1D8Q3W
     Route: 042
     Dates: start: 20230817, end: 20230817
  4. IRINOTECAN [Suspect]
     Active Substance: IRINOTECAN
     Dosage: 60 MILLIGRAM/SQ. METER, D1D8Q3W
     Route: 042
     Dates: start: 20230913, end: 20230913
  5. IRINOTECAN [Suspect]
     Active Substance: IRINOTECAN
     Dosage: CYCLE 5
     Route: 042
     Dates: start: 20231122
  6. IRINOTECAN [Suspect]
     Active Substance: IRINOTECAN
     Dosage: DOSE WAS REDUCED
     Dates: start: 20230923
  7. ATORVASTATIN [Concomitant]
     Active Substance: ATORVASTATIN
     Indication: Hypercholesterolaemia
     Dosage: 80 MILLIGRAM, QD
     Route: 048
     Dates: start: 2013
  8. OMEPRAZOLE [Concomitant]
     Active Substance: OMEPRAZOLE
     Indication: Gastrooesophageal reflux disease
     Dosage: 40 MILLIGRAM, QD
     Route: 048
     Dates: start: 2013
  9. METFORMIN [Concomitant]
     Active Substance: METFORMIN HYDROCHLORIDE
     Indication: Type 2 diabetes mellitus
     Dosage: 1 GRAM, BID
     Route: 048
     Dates: start: 202301
  10. AMOXICILLIN [Concomitant]
     Active Substance: AMOXICILLIN
     Indication: Neutropenic sepsis
     Dosage: UNK
     Route: 048
     Dates: start: 20230823
  11. AMOXICILLIN\CLAVULANATE POTASSIUM [Concomitant]
     Active Substance: AMOXICILLIN\CLAVULANATE POTASSIUM
     Indication: Neutropenic sepsis
     Dosage: UNK
     Route: 048
     Dates: start: 20230919, end: 202309

REACTIONS (1)
  - Pulmonary embolism [Not Recovered/Not Resolved]

NARRATIVE: CASE EVENT DATE: 20231120
